FAERS Safety Report 6686647-0 (Version None)
Quarter: 2010Q2

REPORT INFORMATION
  Report Type: 
  Country: None (occurrence: None)
  Receive Date: 20100419
  Receipt Date: 20100407
  Transmission Date: 20101027
  Serious: Yes (Other)
  Sender: FDA-Public Use
  Company Number: PT-ROCHE-696279

PATIENT
  Age: 51 Year
  Sex: Male

DRUGS (2)
  1. XELODA [Suspect]
     Indication: GASTRIC CANCER
     Route: 065
  2. PLATINUM COMPOUND NOS [Concomitant]
     Indication: GASTRIC CANCER

REACTIONS (3)
  - DISEASE PROGRESSION [None]
  - ENCEPHALITIS [None]
  - METASTASES TO CENTRAL NERVOUS SYSTEM [None]
